FAERS Safety Report 22006659 (Version 1)
Quarter: 2023Q1

REPORT INFORMATION
  Report Type: Other
  Country: None (occurrence: FR)
  Receive Date: 20230217
  Receipt Date: 20230217
  Transmission Date: 20230418
  Serious: Yes (Hospitalization)
  Sender: FDA-Public Use
  Company Number: FR-Spectra Medical Devices, LLC-2138081

PATIENT
  Age: 69 Year
  Sex: Male

DRUGS (16)
  1. SODIUM CHLORIDE [Suspect]
     Active Substance: SODIUM CHLORIDE
     Indication: Product used for unknown indication
     Route: 065
  2. LACTATED RINGERS SOLUTION [Suspect]
     Active Substance: CALCIUM CHLORIDE\POTASSIUM CHLORIDE\SODIUM CHLORIDE\SODIUM LACTATE
     Route: 065
  3. LIDOCAINE [Suspect]
     Active Substance: LIDOCAINE
     Route: 040
  4. PROPOFOL [Suspect]
     Active Substance: PROPOFOL
     Route: 065
  5. KETAMINE [Suspect]
     Active Substance: KETAMINE
     Route: 040
  6. REMIFENTANIL [Concomitant]
     Active Substance: REMIFENTANIL
     Route: 065
  7. EPHEDRINE [Concomitant]
     Active Substance: EPHEDRINE
     Route: 065
  8. PHENYLEPHRINE [Concomitant]
     Active Substance: PHENYLEPHRINE HYDROCHLORIDE
     Route: 065
  9. HYDROXYETHYL STARCH IN SODIUM CHLORIDE [Concomitant]
     Active Substance: HYDROXYETHYL STARCH 130/0.4\SODIUM CHLORIDE
     Route: 065
  10. ACETAMINOPHEN [Concomitant]
     Active Substance: ACETAMINOPHEN
     Route: 065
  11. KETOPROFEN [Concomitant]
     Active Substance: KETOPROFEN
     Route: 065
  12. MORPHINE [Concomitant]
     Active Substance: MORPHINE
     Route: 065
  13. NEOSTIGMINE. [Concomitant]
     Active Substance: NEOSTIGMINE METHYLSULFATE
     Route: 065
  14. ATROPINE [Concomitant]
     Active Substance: ATROPINE
     Route: 065
  15. NALOXONE [Concomitant]
     Active Substance: NALOXONE
     Route: 065
  16. ATRACURIUM BESYLATE [Concomitant]
     Active Substance: ATRACURIUM BESYLATE
     Route: 065

REACTIONS (2)
  - Hypoalbuminaemia [Recovered/Resolved]
  - Sedation [Recovered/Resolved]
